FAERS Safety Report 24968043 (Version 1)
Quarter: 2025Q1

REPORT INFORMATION
  Report Type: Spontaneous
  Country: US (occurrence: US)
  Receive Date: 20250214
  Receipt Date: 20250214
  Transmission Date: 20250409
  Serious: No
  Sender: AVEO PHARMACEUTICALS
  Company Number: US-AVEO PHARMACEUTICALS, INC.-2025-AVEO-US000007

PATIENT

DRUGS (13)
  1. FOTIVDA [Suspect]
     Active Substance: TIVOZANIB HYDROCHLORIDE
     Indication: Renal cell carcinoma
     Dosage: 1.34 MG, DAILY FOR 21 DAYS WITH 7 DAYS OFF (28-DAY CYCLE)
     Route: 048
     Dates: start: 20250101
  2. AMLODIPINE [Suspect]
     Active Substance: AMLODIPINE BESYLATE
     Indication: Hypertension
  3. ACETAMINOPHEN [Concomitant]
     Active Substance: ACETAMINOPHEN
  4. ASPIRIN [Concomitant]
     Active Substance: ASPIRIN
  5. CALCIUM CARBONATE\VITAMIN D [Concomitant]
     Active Substance: CALCIUM CARBONATE\VITAMIN D
  6. HYDRALAZINE [Concomitant]
     Active Substance: HYDRALAZINE HYDROCHLORIDE
  7. LEVOTHYROXINE SODIUM [Concomitant]
     Active Substance: LEVOTHYROXINE SODIUM
  8. METOCLOPRAMIDE [Concomitant]
     Active Substance: METOCLOPRAMIDE
  9. METOPROLOL TARTRATE [Concomitant]
     Active Substance: METOPROLOL TARTRATE
  10. VITAMINS [Concomitant]
     Active Substance: VITAMINS
  11. Omega 3 Complex [Concomitant]
  12. PANTOPRAZOLE [Concomitant]
     Active Substance: PANTOPRAZOLE
  13. ZEMPLAR [Concomitant]
     Active Substance: PARICALCITOL

REACTIONS (5)
  - Fatigue [Unknown]
  - Hypertension [Unknown]
  - Cognitive disorder [Unknown]
  - Anxiety [Unknown]
  - Somnolence [Unknown]

NARRATIVE: CASE EVENT DATE: 20250110
